FAERS Safety Report 19178806 (Version 1)
Quarter: 2021Q2

REPORT INFORMATION
  Report Type: Spontaneous
  Country: CN (occurrence: CN)
  Receive Date: 20210426
  Receipt Date: 20210426
  Transmission Date: 20210717
  Serious: Yes (Other)
  Sender: FDA-Public Use
  Company Number: CN-SA-2021SA132611

PATIENT
  Age: 78 Year
  Sex: Male
  Weight: 50 kg

DRUGS (6)
  1. IRBESARTAN. [Concomitant]
     Active Substance: IRBESARTAN
     Dosage: 0.15 G, QD
  2. CLOPIDOGREL BISULFATE. [Suspect]
     Active Substance: CLOPIDOGREL BISULFATE
     Dosage: 75 MG, QD
  3. HYDROCHLOROTHIAZIDE. [Concomitant]
     Active Substance: HYDROCHLOROTHIAZIDE
     Dosage: 25 MG, QD
  4. SPIRONOLACTONE. [Concomitant]
     Active Substance: SPIRONOLACTONE
     Dosage: 20 MG, QD
  5. CINEPAZIDE MALEATE [Concomitant]
     Active Substance: CINEPAZIDE MALEATE
     Dosage: 80 MG, QD
     Route: 042
  6. WARFARIN SODIUM. [Suspect]
     Active Substance: WARFARIN SODIUM
     Dosage: 2.5 MG, QD

REACTIONS (6)
  - Arrhythmia [Recovering/Resolving]
  - Melaena [Recovering/Resolving]
  - Frequent bowel movements [Recovering/Resolving]
  - Asthenia [Recovering/Resolving]
  - Upper gastrointestinal haemorrhage [Recovering/Resolving]
  - Occult blood positive [Recovering/Resolving]
